FAERS Safety Report 22830532 (Version 2)
Quarter: 2023Q4

REPORT INFORMATION
  Report Type: Spontaneous
  Country: GB (occurrence: GB)
  Receive Date: 20230817
  Receipt Date: 20231004
  Transmission Date: 20240109
  Serious: Yes (Other)
  Sender: FDA-Public Use
  Company Number: GB-MHRA-ADR 28036297

PATIENT
  Age: 78 Year
  Sex: Female

DRUGS (4)
  1. LOSARTAN [Suspect]
     Active Substance: LOSARTAN
     Indication: Product used for unknown indication
     Dosage: 50 MILLIGRAM(DOSE INITIALLY 25MG, INCREASED TO 50MG AT WHICH POINT REACTIONS OCCURRED.)
     Route: 065
  2. LOSARTAN [Suspect]
     Active Substance: LOSARTAN
     Dosage: 25 MG (INITIALLY DOSE)
     Route: 065
  3. LOSARTAN [Suspect]
     Active Substance: LOSARTAN
     Dosage: 50 MG (INCREASED TO 50MG AT WHICH POINT REACTIONS OCCURRED))
     Route: 065
  4. INDAPAMIDE [Concomitant]
     Active Substance: INDAPAMIDE
     Indication: Product used for unknown indication
     Dosage: 50 MG (INCREASED TO 50MG AT WHICH POINT REACTIONS OCCURRED)
     Route: 065

REACTIONS (13)
  - Lower respiratory tract infection [Unknown]
  - Abdominal discomfort [Unknown]
  - Decreased appetite [Unknown]
  - Dizziness [Unknown]
  - Dyspnoea [Unknown]
  - Feeling hot [Unknown]
  - Fatigue [Unknown]
  - Hyperhidrosis [Unknown]
  - Oral herpes [Unknown]
  - Palpitations [Unknown]
  - Tremor [Unknown]
  - Intentional product use issue [Unknown]
  - Product dose confusion [Unknown]

NARRATIVE: CASE EVENT DATE: 20230522
